FAERS Safety Report 8717172 (Version 2)
Quarter: 2012Q4

REPORT INFORMATION
  Report Type: 
  Country: US (occurrence: US)
  Receive Date: 20120810
  Receipt Date: 20121126
  Transmission Date: 20130627
  Serious: Yes (Other)
  Sender: FDA-Public Use
  Company Number: PHEH2012US015429

PATIENT
  Age: 79 Year
  Sex: Female

DRUGS (1)
  1. MIACALCIN [Suspect]
     Dosage: UNK UKN, UNK

REACTIONS (2)
  - Hip fracture [Unknown]
  - Lower limb fracture [Unknown]
